FAERS Safety Report 4990606-3 (Version None)
Quarter: 2006Q2

REPORT INFORMATION
  Report Type: 
  Country: None (occurrence: None)
  Receive Date: 20060427
  Receipt Date: 20060418
  Transmission Date: 20061013
  Serious: Yes (Other)
  Sender: FDA-Public Use
  Company Number: 2006021716

PATIENT
  Age: 85 Year
  Sex: Female
  Weight: 47.6277 kg

DRUGS (2)
  1. LYRICA [Suspect]
     Indication: POST HERPETIC NEURALGIA
     Dosage: 150 MG (50 MG, 3 IN 1 D)
     Dates: start: 20051213, end: 20051201
  2. TYLENOL [Concomitant]

REACTIONS (10)
  - ASTHENIA [None]
  - DIZZINESS [None]
  - DRUG INEFFECTIVE [None]
  - DYSSTASIA [None]
  - HEADACHE [None]
  - MOBILITY DECREASED [None]
  - NAUSEA [None]
  - ORAL INTAKE REDUCED [None]
  - PAIN [None]
  - PHARMACEUTICAL PRODUCT COMPLAINT [None]
